FAERS Safety Report 5630045-5 (Version None)
Quarter: 2008Q1

REPORT INFORMATION
  Report Type: 
  Country: None (occurrence: None)
  Receive Date: 20080218
  Receipt Date: 20080206
  Transmission Date: 20080703
  Serious: Yes (Other)
  Sender: FDA-Public Use
  Company Number: PHHY2008CA00950

PATIENT

DRUGS (4)
  1. CALCIUM CHANNEL BLOCKERS [Concomitant]
     Indication: HYPERTENSION
  2. DIURETICS [Concomitant]
     Indication: HYPERTENSION
  3. BETA BLOCKING AGENTS [Concomitant]
     Indication: HYPERTENSION
  4. DIOVAN [Suspect]
     Indication: MICROALBUMINURIA
     Dosage: 160 MG, UNK

REACTIONS (1)
  - URINE ALBUMIN/CREATININE RATIO INCREASED [None]
